FAERS Safety Report 10386843 (Version 3)
Quarter: 2014Q4

REPORT INFORMATION
  Report Type: Spontaneous
  Country: US (occurrence: US)
  Receive Date: 20140815
  Receipt Date: 20141114
  Transmission Date: 20150528
  Serious: No
  Sender: FDA-Public Use
  Company Number: US-ASTRAZENECA-2014SE57292

PATIENT
  Age: 54 Year
  Sex: Female
  Weight: 83.9 kg

DRUGS (3)
  1. DRAMAMINE [Concomitant]
     Active Substance: DIMENHYDRINATE
  2. FASLODEX [Suspect]
     Active Substance: FULVESTRANT
     Indication: BREAST CANCER METASTATIC
     Dosage: 500 MG EVERY 28 DAYS
     Route: 030
     Dates: start: 2010
  3. PRAVACHOL [Concomitant]
     Active Substance: PRAVASTATIN SODIUM
     Indication: BLOOD CHOLESTEROL ABNORMAL
     Dates: start: 2014

REACTIONS (8)
  - Vomiting [Unknown]
  - Chills [Unknown]
  - Nausea [Unknown]
  - Dizziness [Unknown]
  - Skin reaction [Recovered/Resolved]
  - Pain [Unknown]
  - Injection site urticaria [Unknown]
  - Injection site pain [Unknown]

NARRATIVE: CASE EVENT DATE: 2010
